FAERS Safety Report 8959488 (Version 1)
Quarter: 2012Q4

REPORT INFORMATION
  Report Type: 
  Country: CH (occurrence: CH)
  Receive Date: 20121212
  Receipt Date: 20121212
  Transmission Date: 20130627
  Serious: Yes (Other)
  Sender: FDA-Public Use
  Company Number: CH-BAYER-2012-128864

PATIENT
  Age: 75 Year
  Sex: Male

DRUGS (8)
  1. CIPROXIN [Suspect]
     Indication: SEPTICAEMIA
     Dosage: UNK
     Dates: end: 20111022
  2. DISTRANEURIN [Suspect]
     Dosage: UNK
     Dates: end: 20111018
  3. LEXOTANIL [Suspect]
     Dosage: UNK
     Dates: end: 20111018
  4. BUPRENORPHINE [Suspect]
     Dosage: UNK
     Dates: end: 20111018
  5. SIMCORA [Concomitant]
     Dosage: 40 mg, QD
  6. SINTROM [Concomitant]
     Dosage: 1 mg, TIW
  7. MORPHINE [Concomitant]
     Dosage: 0.25 ml, TID
  8. DAFALGAN [Concomitant]
     Dosage: 500 mg, PRN

REACTIONS (3)
  - Confusional state [Recovered/Resolved]
  - Mental impairment [Recovered/Resolved]
  - Hyponatraemia [Recovered/Resolved]
